FAERS Safety Report 21955789 (Version 1)
Quarter: 2023Q1

REPORT INFORMATION
  Report Type: Spontaneous
  Country: FR (occurrence: FR)
  Receive Date: 20230206
  Receipt Date: 20230206
  Transmission Date: 20230417
  Serious: Yes (Life-Threatening, Hospitalization)
  Sender: FDA-Public Use
  Company Number: FR-MACLEODS PHARMACEUTICALS US LTD-MAC2023039590

PATIENT

DRUGS (1)
  1. METFORMIN [Suspect]
     Active Substance: METFORMIN HYDROCHLORIDE
     Indication: Diabetes mellitus
     Dosage: 1.7 GRAM, QD
     Route: 065

REACTIONS (5)
  - Myocardial infarction [Unknown]
  - Sepsis [Unknown]
  - Shock [Unknown]
  - Oliguria [Unknown]
  - Lactic acidosis [Unknown]
